FAERS Safety Report 17603225 (Version 2)
Quarter: 2020Q2

REPORT INFORMATION
  Report Type: Spontaneous
  Country: CN (occurrence: CN)
  Receive Date: 20200331
  Receipt Date: 20200403
  Transmission Date: 20200713
  Serious: Yes (Hospitalization)
  Sender: FDA-Public Use
  Company Number: CN-GLAXOSMITHKLINE-CN2020APC055233

PATIENT
  Age: 75 Year
  Sex: Male
  Weight: 40 kg

DRUGS (1)
  1. SERETIDE [Suspect]
     Active Substance: FLUTICASONE PROPIONATE\SALMETEROL XINAFOATE
     Indication: ASTHMA
     Dosage: UNK,60 DOSES
     Dates: start: 20200327

REACTIONS (7)
  - Drug ineffective [Unknown]
  - Disease recurrence [Unknown]
  - Incorrect dose administered [Unknown]
  - Wrong technique in product usage process [Unknown]
  - Asthma [Unknown]
  - Overdose [Unknown]
  - Inappropriate schedule of product administration [Unknown]
